FAERS Safety Report 19011014 (Version 1)
Quarter: 2021Q1

REPORT INFORMATION
  Report Type: Spontaneous
  Country: US (occurrence: US)
  Receive Date: 20210316
  Receipt Date: 20210316
  Transmission Date: 20210420
  Serious: No
  Sender: FDA-Public Use
  Company Number: US-LEO PHARMA-335140

PATIENT
  Sex: Male

DRUGS (1)
  1. ENSTILAR [Suspect]
     Active Substance: BETAMETHASONE DIPROPIONATE\CALCIPOTRIENE HYDRATE
     Indication: SKIN LESION

REACTIONS (5)
  - Product physical consistency issue [Unknown]
  - Skin abrasion [Unknown]
  - Product use in unapproved indication [Unknown]
  - Application site burn [Unknown]
  - Application site pain [Unknown]
